FAERS Safety Report 22332495 (Version 1)
Quarter: 2023Q2

REPORT INFORMATION
  Report Type: Report from Study
  Country: US (occurrence: None)
  Receive Date: 20230517
  Receipt Date: 20230517
  Transmission Date: 20230721
  Serious: Yes (Other)
  Sender: FDA-Public Use
  Company Number: US-ROCHE-3349248

PATIENT

DRUGS (18)
  1. CYCLOPHOSPHAMIDE [Suspect]
     Active Substance: CYCLOPHOSPHAMIDE
     Indication: Burkitt^s lymphoma
     Route: 065
     Dates: start: 20160213, end: 20160213
  2. CYCLOPHOSPHAMIDE [Suspect]
     Active Substance: CYCLOPHOSPHAMIDE
     Route: 065
     Dates: start: 20160306, end: 20160306
  3. CYCLOPHOSPHAMIDE [Suspect]
     Active Substance: CYCLOPHOSPHAMIDE
     Route: 065
     Dates: start: 20160327, end: 20160327
  4. CYCLOPHOSPHAMIDE [Suspect]
     Active Substance: CYCLOPHOSPHAMIDE
     Dosage: SUBSEQUENT DOSE 06/MAY/2016, 28/MAY/2016
     Route: 065
     Dates: start: 20160415, end: 20160415
  5. DOXORUBICIN [Suspect]
     Active Substance: DOXORUBICIN
     Indication: Burkitt^s lymphoma
     Route: 065
     Dates: start: 20160209, end: 20160212
  6. DOXORUBICIN [Suspect]
     Active Substance: DOXORUBICIN
     Route: 065
     Dates: start: 20160302, end: 20160305
  7. DOXORUBICIN [Suspect]
     Active Substance: DOXORUBICIN
     Dosage: SUBSEQUENT DOSE ON 26/MAR/2016
     Route: 065
     Dates: start: 20160322, end: 20160324
  8. DOXORUBICIN [Suspect]
     Active Substance: DOXORUBICIN
     Dosage: SUBSEQUENT DOSES ON 02/MAY/2016, 23/MAY/2016
     Route: 065
     Dates: start: 20160411, end: 20160414
  9. ETOPOSIDE [Suspect]
     Active Substance: ETOPOSIDE
     Indication: Burkitt^s lymphoma
     Route: 065
     Dates: start: 20160209, end: 20160212
  10. ETOPOSIDE [Suspect]
     Active Substance: ETOPOSIDE
     Route: 065
     Dates: start: 20160302, end: 20160305
  11. ETOPOSIDE [Suspect]
     Active Substance: ETOPOSIDE
     Dosage: SUBSEQUENT DOSE ON 26/MAR/2016
     Route: 065
     Dates: start: 20160322, end: 20160324
  12. ETOPOSIDE [Suspect]
     Active Substance: ETOPOSIDE
     Dosage: SUBSEQUENT DOSES ON 02/MAY/2016, 23/MAY/2016
     Route: 065
     Dates: start: 20160411, end: 20160414
  13. METHOTREXATE [Suspect]
     Active Substance: METHOTREXATE
     Indication: Burkitt^s lymphoma
     Dosage: SUBSEQUENT DOSES ON 25/MAR/2016, 13/APR/2016, 15/APR/2016, 03/MAY/2016, 06/MAY/2016, 24/MAY/2016, 26
     Route: 065
     Dates: start: 20160322, end: 20160322
  14. PEGFILGRASTIM [Suspect]
     Active Substance: PEGFILGRASTIM
     Indication: Burkitt^s lymphoma
     Dosage: SUBSEQUENT DOSES ON 07/MAR/2016, 28/MAR/2016, 16/APR/2016, 08/MAY/2016, 29/MAY/2016
     Route: 065
     Dates: start: 20160218, end: 20160218
  15. PREDNISONE [Suspect]
     Active Substance: PREDNISONE
     Indication: Burkitt^s lymphoma
     Dosage: SUBSEQUENT DOSES ON 22/MAR/2016, 11/APR/2016, 02/MAY/2016, 23/MAY/2016
     Route: 065
     Dates: start: 20160209, end: 20160213
  16. PREDNISONE [Suspect]
     Active Substance: PREDNISONE
     Route: 065
     Dates: start: 20160301, end: 20160306
  17. RITUXIMAB [Suspect]
     Active Substance: RITUXIMAB
     Indication: Burkitt^s lymphoma
     Dosage: SUBSEQUENT DOSES ON 01/MAR/2016, 22/MAR/2016, 11/APR/2016, 02/MAY/2016, 23/MAY/2016
     Route: 065
     Dates: start: 20160209, end: 20160209
  18. VINCRISTINE [Suspect]
     Active Substance: VINCRISTINE
     Indication: Burkitt^s lymphoma
     Dosage: SUBSEQUENT DOSES ON 02/MAR/2016, 22/MAR/2016, 26/MAR/2016, 26/MAR/2016, 11/APR/2016, 02/MAY/2016, 23
     Route: 065
     Dates: start: 20160209, end: 20160212

REACTIONS (3)
  - Stomatitis [Recovered/Resolved]
  - Anaemia [Recovered/Resolved]
  - Febrile neutropenia [Recovered/Resolved]

NARRATIVE: CASE EVENT DATE: 20160424
